FAERS Safety Report 13828777 (Version 1)
Quarter: 2017Q3

REPORT INFORMATION
  Report Type: Spontaneous
  Country: US (occurrence: US)
  Receive Date: 20170802
  Receipt Date: 20170802
  Transmission Date: 20171127
  Serious: Yes (Other)
  Sender: FDA-Public Use
  Company Number: None

PATIENT
  Age: 62 Year
  Sex: Female
  Weight: 68.85 kg

DRUGS (11)
  1. FLEXERIL [Concomitant]
     Active Substance: CYCLOBENZAPRINE HYDROCHLORIDE
  2. BIOTIN [Concomitant]
     Active Substance: BIOTIN
  3. MULTIVITAMIN FOR WOMEN [Concomitant]
  4. ASPIRIN. [Concomitant]
     Active Substance: ASPIRIN
  5. TRAMADOL. [Concomitant]
     Active Substance: TRAMADOL
  6. PRAVASTATIN SODIUM. [Concomitant]
     Active Substance: PRAVASTATIN SODIUM
  7. ESTRACE [Concomitant]
     Active Substance: ESTRADIOL
  8. FLUTICASONE. [Concomitant]
     Active Substance: FLUTICASONE
  9. STOOL SOFTENER (DOCUSATE) [Concomitant]
     Active Substance: DOCUSATE
  10. SOTALOL. [Suspect]
     Active Substance: SOTALOL
     Indication: ATRIAL FIBRILLATION
     Dosage: ?          QUANTITY:1 TABLET(S);?
     Route: 048
     Dates: start: 20160916, end: 20170104
  11. AMIODARONE HCL 200MG [Suspect]
     Active Substance: AMIODARONE HYDROCHLORIDE
     Indication: ATRIAL FIBRILLATION
     Dosage: ?          QUANTITY:1 TABLET(S);?
     Route: 048
     Dates: start: 20170104, end: 20170331

REACTIONS (1)
  - Alopecia [None]

NARRATIVE: CASE EVENT DATE: 20170104
